FAERS Safety Report 25517588 (Version 1)
Quarter: 2025Q3

REPORT INFORMATION
  Report Type: Spontaneous
  Country: GB (occurrence: GB)
  Receive Date: 20250704
  Receipt Date: 20250704
  Transmission Date: 20251021
  Serious: Yes (Disabling, Other)
  Sender: RANBAXY
  Company Number: GB-MHRA-MED-202506221301497060-QLNRY

PATIENT
  Age: 41 Year
  Sex: Female
  Weight: 88 kg

DRUGS (1)
  1. SERTRALINE [Suspect]
     Active Substance: SERTRALINE HYDROCHLORIDE
     Indication: Anxiety
     Route: 065
     Dates: start: 20250619, end: 20250620

REACTIONS (7)
  - Nausea [Recovering/Resolving]
  - Paraesthesia [Recovering/Resolving]
  - Retching [Recovering/Resolving]
  - Abdominal pain upper [Recovering/Resolving]
  - Diarrhoea [Recovering/Resolving]
  - Vomiting [Recovered/Resolved]
  - Headache [Recovering/Resolving]

NARRATIVE: CASE EVENT DATE: 20250620
